FAERS Safety Report 15893337 (Version 2)
Quarter: 2019Q1

REPORT INFORMATION
  Report Type: Spontaneous
  Country: KR (occurrence: KR)
  Receive Date: 20190130
  Receipt Date: 20190217
  Transmission Date: 20190417
  Serious: Yes (Death, Hospitalization, Other)
  Sender: FDA-Public Use
  Company Number: KR-009507513-1901KOR006729

PATIENT
  Sex: Male

DRUGS (4)
  1. SODIUM CHLORIDE. [Concomitant]
     Active Substance: SODIUM CHLORIDE
     Dosage: QUANTITY 12, DAYS 1
     Dates: start: 20181127
  2. MANNITOL. [Concomitant]
     Active Substance: MANNITOL
     Dosage: QUANTITY 47, DAYS 1
     Dates: start: 20181121, end: 20181207
  3. DEXAMETHASONE SODIUM PHOSPHATE. [Concomitant]
     Active Substance: DEXAMETHASONE SODIUM PHOSPHATE
     Dosage: QUANTITY 94, DAYS 1
     Dates: start: 20181121, end: 20190101
  4. KEYTRUDA [Suspect]
     Active Substance: PEMBROLIZUMAB
     Indication: BLADDER CANCER
     Dosage: QUANTITY 2, DAYS 1
     Dates: start: 20181127

REACTIONS (3)
  - Malignant neoplasm progression [Fatal]
  - Adverse event [Unknown]
  - Inappropriate schedule of product administration [Unknown]

NARRATIVE: CASE EVENT DATE: 20181127
